FAERS Safety Report 9448839 (Version 1)
Quarter: 2013Q3

REPORT INFORMATION
  Report Type: Spontaneous
  Country: US (occurrence: US)
  Receive Date: 20130808
  Receipt Date: 20130808
  Transmission Date: 20140515
  Serious: Yes (Hospitalization)
  Sender: FDA-Public Use
  Company Number: US-SANOFI-AVENTIS-2013SA079162

PATIENT
  Age: 84 Year
  Sex: Female

DRUGS (6)
  1. MULTAQ [Suspect]
     Indication: ATRIAL FIBRILLATION
     Route: 065
  2. COUMADIN [Concomitant]
  3. BENICAR [Concomitant]
  4. METOPROLOL [Concomitant]
  5. NORVASC [Concomitant]
  6. ALL OTHER THERAPEUTIC PRODUCTS [Concomitant]

REACTIONS (6)
  - Blood pressure abnormal [Unknown]
  - Atrial fibrillation [Recovered/Resolved]
  - Heart rate increased [Recovered/Resolved]
  - Wrong technique in drug usage process [Unknown]
  - Chest discomfort [Recovered/Resolved]
  - Dyspnoea [Recovered/Resolved]
